FAERS Safety Report 5149415-7 (Version None)
Quarter: 2006Q4

REPORT INFORMATION
  Report Type: 
  Country: None (occurrence: None)
  Receive Date: 20061113
  Receipt Date: 20060104
  Transmission Date: 20070319
  Serious: No
  Sender: FDA-Public Use
  Company Number: US-GLAXOSMITHKLINE-A0587780A

PATIENT
  Age: 62 Year
  Sex: Female

DRUGS (3)
  1. COREG [Suspect]
     Route: 048
     Dates: start: 20050601
  2. LIPITOR [Concomitant]
  3. ACE INHIBITOR [Concomitant]

REACTIONS (2)
  - ALOPECIA [None]
  - FLUID RETENTION [None]
